FAERS Safety Report 11576904 (Version 2)
Quarter: 2017Q2

REPORT INFORMATION
  Report Type: Spontaneous
  Country: US (occurrence: US)
  Receive Date: 20150930
  Receipt Date: 20170626
  Transmission Date: 20170829
  Serious: No
  Sender: FDA-Public Use
  Company Number: US-BAYER-2015-429189

PATIENT
  Age: 49 Year
  Sex: Female

DRUGS (1)
  1. AVELOX [Suspect]
     Active Substance: MOXIFLOXACIN HYDROCHLORIDE
     Dosage: UNK
     Dates: start: 201206

REACTIONS (6)
  - Neurodermatitis [None]
  - Rash papular [None]
  - Neuropathy peripheral [None]
  - Injury [None]
  - Emotional distress [None]
  - Pain [None]

NARRATIVE: CASE EVENT DATE: 20160408
